FAERS Safety Report 5826172-X (Version None)
Quarter: 2008Q3

REPORT INFORMATION
  Report Type: 
  Country: None (occurrence: None)
  Receive Date: 20080729
  Receipt Date: 20080723
  Transmission Date: 20090109
  Serious: Yes (Hospitalization, Other)
  Sender: FDA-Public Use
  Company Number: US-GILEAD-2008-0017069

PATIENT
  Sex: Female

DRUGS (12)
  1. LETAIRIS [Suspect]
     Indication: PULMONARY ARTERIAL HYPERTENSION
     Dosage: 10 MG QD
     Route: 048
     Dates: start: 20070801
  2. IRON SULFATETHIAMIN COMPOUND TAB [Concomitant]
     Indication: IRON DEFICIENCY ANAEMIA
     Dosage: 325 MG BID
     Route: 048
  3. VITAMIN C WITH IRON [Concomitant]
     Dosage: 250 MG BID
  4. REVATIO [Concomitant]
     Dosage: 20 MG TID
     Route: 048
  5. EVOXAC [Concomitant]
     Dosage: 30 MG QD
  6. ALLOPURINOL [Concomitant]
     Dosage: 100 MG QD
  7. RALOXIFENE HCL [Concomitant]
     Dosage: 60 MG QD
  8. LASIX [Concomitant]
     Dosage: 20 MG QD
     Route: 048
  9. LASIX [Concomitant]
     Route: 048
  10. VITAMIN D [Concomitant]
     Dosage: 5000 IU Q WK
     Route: 048
  11. NEXIUM [Concomitant]
     Dosage: 40 MG QD
     Route: 048
  12. OXYGEN [Concomitant]
     Dosage: 2 LITERS
     Route: 055

REACTIONS (4)
  - ANAEMIA [None]
  - HYPOTENSION [None]
  - PNEUMONIA [None]
  - RENAL FAILURE ACUTE [None]
